FAERS Safety Report 4998416-8 (Version None)
Quarter: 2006Q2

REPORT INFORMATION
  Report Type: 
  Country: None (occurrence: None)
  Receive Date: 20060510
  Receipt Date: 20060424
  Transmission Date: 20061013
  Serious: Yes (Hospitalization)
  Sender: FDA-Public Use
  Company Number: US-GLAXOSMITHKLINE-A0576309D

PATIENT
  Age: 12 Year
  Sex: Female
  Weight: 28.2 kg

DRUGS (1)
  1. 506U78 [Suspect]
     Dosage: 650MGM2 CYCLIC
     Route: 042
     Dates: start: 20050624

REACTIONS (30)
  - BLOOD POTASSIUM [None]
  - COORDINATION ABNORMAL [None]
  - CRANIAL NEUROPATHY [None]
  - DECREASED APPETITE [None]
  - DEHYDRATION [None]
  - DIARRHOEA [None]
  - DIZZINESS [None]
  - DYSPNOEA [None]
  - EATING DISORDER [None]
  - EYE DISORDER [None]
  - HYPERGLYCAEMIA [None]
  - HYPERMAGNESAEMIA [None]
  - HYPERNATRAEMIA [None]
  - HYPERREFLEXIA [None]
  - HYPERTENSION [None]
  - HYPOALBUMINAEMIA [None]
  - HYPONATRAEMIA [None]
  - HYPOPHOSPHATAEMIA [None]
  - INFECTION [None]
  - LETHARGY [None]
  - NAUSEA [None]
  - NUCLEAR MAGNETIC RESONANCE IMAGING BRAIN ABNORMAL [None]
  - PANCREATITIS [None]
  - PNEUMONIA [None]
  - PYREXIA [None]
  - RESPIRATORY ALKALOSIS [None]
  - SOMNOLENCE [None]
  - SPEECH DISORDER [None]
  - TACHYPNOEA [None]
  - VOMITING [None]
